FAERS Safety Report 7884223-5 (Version None)
Quarter: 2011Q4

REPORT INFORMATION
  Report Type: 
  Country: None (occurrence: None)
  Receive Date: 20111102
  Receipt Date: 20111028
  Transmission Date: 20120403
  Serious: No
  Sender: FDA-Public Use
  Company Number: US-PFIZER INC-2011018643

PATIENT
  Sex: Female
  Weight: 90.703 kg

DRUGS (1)
  1. IBUPROFEN (ADVIL) [Suspect]
     Indication: ARTHRITIS
     Dosage: 400MG OR 600MG EVERY 4 HOURS
     Dates: end: 20110101

REACTIONS (1)
  - DRUG EFFECT DECREASED [None]
